FAERS Safety Report 14738397 (Version 2)
Quarter: 2019Q2

REPORT INFORMATION
  Report Type: Spontaneous
  Country: US (occurrence: US)
  Receive Date: 20180409
  Receipt Date: 20190528
  Transmission Date: 20190711
  Serious: Yes (Hospitalization)
  Sender: FDA-Public Use
  Company Number: US-PFIZER INC-2018143860

PATIENT
  Age: 31 Year
  Sex: Male
  Weight: 61.22 kg

DRUGS (3)
  1. BENEFIX [Suspect]
     Active Substance: COAGULATION FACTOR IX RECOMBINANT HUMAN\ISOPROPYL ALCOHOL
     Dosage: 5500 IU, EVERY 24 HOURS
     Route: 042
  2. BENEFIX [Suspect]
     Active Substance: COAGULATION FACTOR IX RECOMBINANT HUMAN\ISOPROPYL ALCOHOL
     Indication: INTERNAL HAEMORRHAGE
     Dosage: UNK
     Dates: start: 2011
  3. BENEFIX [Suspect]
     Active Substance: COAGULATION FACTOR IX RECOMBINANT HUMAN\ISOPROPYL ALCOHOL
     Dosage: 5500 IU, EVERY 12 HOURS
     Route: 042
     Dates: start: 201712

REACTIONS (4)
  - Joint injury [Not Recovered/Not Resolved]
  - Cerebral haemorrhage [Recovered/Resolved]
  - Internal haemorrhage [Unknown]
  - Joint swelling [Not Recovered/Not Resolved]

NARRATIVE: CASE EVENT DATE: 201712
